FAERS Safety Report 9507784 (Version 1)
Quarter: 2013Q1

REPORT INFORMATION
  Report Type: Spontaneous
  Country: US (occurrence: None)
  Receive Date: 20130305
  Receipt Date: 20130305
  Transmission Date: 20140127
  Serious: Yes (Other)
  Sender: FDA-Public Use
  Company Number: 163-21880-12051157

PATIENT
  Age: 72 Year
  Sex: Male

DRUGS (4)
  1. REVLIMID [Suspect]
     Indication: MYELODYSPLASTIC SYNDROME
     Dosage: 1 IN 1 D
     Route: 048
     Dates: start: 20100727, end: 20120507
  2. EBUPROFEN (IBUPROFEN) [Concomitant]
  3. IMODIUM (LOPERAMIDE) [Concomitant]
  4. CELEBREX (CELECOXIB) [Concomitant]

REACTIONS (3)
  - Refractory cytopenia with unilineage dysplasia [None]
  - Drug ineffective [None]
  - No therapeutic response [None]
